FAERS Safety Report 16308579 (Version 2)
Quarter: 2019Q2

REPORT INFORMATION
  Report Type: Spontaneous
  Country: US (occurrence: US)
  Receive Date: 20190514
  Receipt Date: 20190625
  Transmission Date: 20190711
  Serious: Yes (Other)
  Sender: FDA-Public Use
  Company Number: US-BAYER-2019-090708

PATIENT
  Age: 24 Year
  Sex: Female
  Weight: 94.79 kg

DRUGS (1)
  1. KYLEENA [Suspect]
     Active Substance: LEVONORGESTREL
     Indication: CONTRACEPTION
     Dosage: 17.5 MCG/24HR, CONT
     Route: 015
     Dates: start: 20190315, end: 20190605

REACTIONS (2)
  - Embedded device [Recovered/Resolved]
  - Medical device discomfort [None]

NARRATIVE: CASE EVENT DATE: 20190430
